FAERS Safety Report 10202602 (Version 2)
Quarter: 2014Q2

REPORT INFORMATION
  Report Type: Report from Study
  Country: US (occurrence: US)
  Receive Date: 20140528
  Receipt Date: 20140625
  Transmission Date: 20141212
  Serious: Yes (Hospitalization)
  Sender: FDA-Public Use
  Company Number: US-ACTELION-A-US2014-99407

PATIENT
  Age: 77 Year
  Sex: Female

DRUGS (7)
  1. TRACLEER [Suspect]
     Indication: PULMONARY ARTERIAL HYPERTENSION
     Dosage: UNK
     Route: 048
  2. COUMADIN [Suspect]
  3. LASIX [Concomitant]
  4. SYNTHROID [Concomitant]
  5. PROLIA [Concomitant]
  6. DIGOXIN [Concomitant]
  7. SPIRONOLACTONE [Concomitant]

REACTIONS (3)
  - Gastrointestinal haemorrhage [Recovered/Resolved]
  - Asthenia [Recovered/Resolved]
  - Transfusion [Recovered/Resolved]
